FAERS Safety Report 8025376-8 (Version None)
Quarter: 2012Q1

REPORT INFORMATION
  Report Type: 
  Country: None (occurrence: None)
  Receive Date: 20120105
  Receipt Date: 20120103
  Transmission Date: 20120608
  Serious: Yes (Hospitalization)
  Sender: FDA-Public Use
  Company Number: IT-PFIZER INC-2012001865

PATIENT
  Age: 64 Year
  Sex: Male

DRUGS (6)
  1. CAMPTOSAR [Suspect]
     Indication: COLON CANCER
     Dosage: 200 MG, WEEKLY
     Route: 042
     Dates: start: 20110616, end: 20110817
  2. OXYCONTIN [Concomitant]
  3. ORAMORPH SR [Concomitant]
  4. NEXIUM [Concomitant]
  5. EN [Concomitant]
  6. DEXAMETHASONE SODIUM PHOSPHATE [Concomitant]

REACTIONS (5)
  - DIARRHOEA [None]
  - ASTHENIA [None]
  - APHTHOUS STOMATITIS [None]
  - DYSPHAGIA [None]
  - NEUTROPENIA [None]
